FAERS Safety Report 14699510 (Version 2)
Quarter: 2018Q2

REPORT INFORMATION
  Report Type: Spontaneous
  Country: US (occurrence: US)
  Receive Date: 20180330
  Receipt Date: 20180525
  Transmission Date: 20180711
  Serious: Yes (Hospitalization, Other)
  Sender: FDA-Public Use
  Company Number: US-GLAXOSMITHKLINE-US2018053220

PATIENT
  Age: 68 Year
  Sex: Female

DRUGS (19)
  1. COUMADIN [Concomitant]
     Active Substance: WARFARIN SODIUM
  2. PREDNISONE. [Concomitant]
     Active Substance: PREDNISONE
  3. ZYRTEC [Concomitant]
     Active Substance: CETIRIZINE HYDROCHLORIDE
  4. LIPITOR [Concomitant]
     Active Substance: ATORVASTATIN CALCIUM
  5. ADVAIR HFA [Suspect]
     Active Substance: FLUTICASONE PROPIONATE\SALMETEROL XINAFOATE
     Indication: BRONCHITIS CHRONIC
     Dosage: 1 PUFF(S), 1D
     Route: 055
     Dates: start: 2013, end: 201710
  6. DIOVAN [Concomitant]
     Active Substance: VALSARTAN
  7. BREO ELLIPTA [Concomitant]
     Active Substance: FLUTICASONE FUROATE\VILANTEROL TRIFENATATE
  8. ADVAIR DISKUS [Suspect]
     Active Substance: FLUTICASONE PROPIONATE\SALMETEROL XINAFOATE
     Indication: BRONCHITIS CHRONIC
     Dosage: 1 PUFF(S), BID
     Route: 055
     Dates: start: 2012, end: 2013
  9. ADVAIR HFA [Suspect]
     Active Substance: FLUTICASONE PROPIONATE\SALMETEROL XINAFOATE
     Indication: ASTHMA
  10. CRESTOR [Concomitant]
     Active Substance: ROSUVASTATIN CALCIUM
  11. ADVAIR DISKUS [Suspect]
     Active Substance: FLUTICASONE PROPIONATE\SALMETEROL XINAFOATE
     Indication: ASTHMA
  12. ADVAIR HFA [Suspect]
     Active Substance: FLUTICASONE PROPIONATE\SALMETEROL XINAFOATE
     Indication: ASTHMA
  13. LYRICA [Concomitant]
     Active Substance: PREGABALIN
  14. SPIRIVA [Concomitant]
     Active Substance: TIOTROPIUM BROMIDE MONOHYDRATE
  15. ADVAIR DISKUS [Suspect]
     Active Substance: FLUTICASONE PROPIONATE\SALMETEROL XINAFOATE
     Indication: ASTHMA
  16. SINGULAIR [Concomitant]
     Active Substance: MONTELUKAST SODIUM
  17. ALBUTEROL. [Concomitant]
     Active Substance: ALBUTEROL
  18. TRAZODONE [Concomitant]
     Active Substance: TRAZODONE HYDROCHLORIDE
  19. ZOLOFT [Concomitant]
     Active Substance: SERTRALINE HYDROCHLORIDE

REACTIONS (12)
  - Neck surgery [Recovered/Resolved]
  - Ill-defined disorder [Unknown]
  - Diarrhoea [Unknown]
  - Fall [Unknown]
  - Vomiting [Recovered/Resolved]
  - Product use in unapproved indication [Recovered/Resolved]
  - Pulmonary embolism [Recovered/Resolved]
  - Concussion [Recovered/Resolved]
  - Fatigue [Recovered/Resolved]
  - Dyspnoea [Recovered/Resolved]
  - Dysphonia [Not Recovered/Not Resolved]
  - Nausea [Recovered/Resolved]

NARRATIVE: CASE EVENT DATE: 2012
